FAERS Safety Report 8971417 (Version 1)
Quarter: 2012Q4

REPORT INFORMATION
  Report Type: 
  Country: FR (occurrence: FR)
  Receive Date: 20121218
  Receipt Date: 20121218
  Transmission Date: 20130627
  Serious: Yes (Hospitalization)
  Sender: FDA-Public Use
  Company Number: FR-MERCK-1212FRA005072

PATIENT
  Age: 46 Year
  Sex: Male

DRUGS (5)
  1. JANUVIA [Suspect]
     Indication: TYPE 1 DIABETES MELLITUS
     Dosage: 100 mg, qd
     Route: 048
     Dates: start: 20090316, end: 20090511
  2. METFORMIN [Suspect]
     Indication: TYPE 1 DIABETES MELLITUS
     Dosage: 1000 mg, tid
     Route: 048
     Dates: start: 20090316, end: 20090511
  3. COMPETACT [Suspect]
     Indication: TYPE 1 DIABETES MELLITUS
     Dosage: UNK
     Route: 048
     Dates: start: 200811, end: 20090316
  4. TRUVADA [Concomitant]
     Indication: HIV INFECTION
     Dosage: UNK
     Route: 048
     Dates: start: 20060921
  5. VIRAMUNE [Concomitant]
     Indication: HIV INFECTION
     Dosage: 200 mg, bid
     Route: 048
     Dates: start: 20060921

REACTIONS (3)
  - Acute myocardial infarction [Recovered/Resolved]
  - Arteriosclerosis coronary artery [Unknown]
  - Off label use [Unknown]
